FAERS Safety Report 14066453 (Version 1)
Quarter: 2017Q4

REPORT INFORMATION
  Report Type: Spontaneous
  Country: CZ (occurrence: CZ)
  Receive Date: 20171009
  Receipt Date: 20171009
  Transmission Date: 20180321
  Serious: Yes (Other)
  Sender: FDA-Public Use
  Company Number: CZ-TEVA-814363ISR

PATIENT
  Sex: Female

DRUGS (1)
  1. IBUPROFEN DR. MAX [Suspect]
     Active Substance: IBUPROFEN

REACTIONS (7)
  - Dyspnoea [Unknown]
  - Face oedema [Unknown]
  - Chest discomfort [Unknown]
  - Hypersensitivity [Unknown]
  - Pruritus [Unknown]
  - Oral mucosal blistering [Unknown]
  - Rash [Unknown]
